FAERS Safety Report 8504870-7 (Version None)
Quarter: 2012Q2

REPORT INFORMATION
  Report Type: 
  Country: None (occurrence: None)
  Receive Date: 20120405
  Receipt Date: 20100806
  Transmission Date: 20120825
  Serious: Yes (Other)
  Sender: FDA-Public Use
  Company Number: PHHY2010US52174

PATIENT
  Age: 82 Year
  Sex: Female

DRUGS (1)
  1. RECLAST [Suspect]
     Dosage: , INFUSION
     Dates: start: 20090819

REACTIONS (3)
  - MUSCLE SPASMS [None]
  - CAST APPLICATION [None]
  - BLOOD CALCIUM DECREASED [None]
